FAERS Safety Report 15355666 (Version 1)
Quarter: 2018Q3

REPORT INFORMATION
  Report Type: Spontaneous
  Country: US (occurrence: US)
  Receive Date: 20180830
  Receipt Date: 20180830
  Transmission Date: 20181010
  Serious: Yes (Life-Threatening, Disabling)
  Sender: FDA-Public Use
  Company Number: None

PATIENT
  Age: 10 Year
  Sex: Male

DRUGS (1)
  1. MIRALAX [Suspect]
     Active Substance: POLYETHYLENE GLYCOL 3350
     Indication: INFREQUENT BOWEL MOVEMENTS

REACTIONS (3)
  - Contraindication to medical treatment [None]
  - Contraindicated product administered [None]
  - Renal failure [None]

NARRATIVE: CASE EVENT DATE: 20180830
